FAERS Safety Report 13697360 (Version 1)
Quarter: 2017Q2

REPORT INFORMATION
  Report Type: Spontaneous
  Country: US (occurrence: US)
  Receive Date: 20170628
  Receipt Date: 20170628
  Transmission Date: 20170830
  Serious: No
  Sender: FDA-Public Use
  Company Number: US-BAYER-2017-124185

PATIENT
  Age: 58 Year
  Sex: Female
  Weight: 76 kg

DRUGS (2)
  1. MIRALAX [Suspect]
     Active Substance: POLYETHYLENE GLYCOL 3350
     Indication: IRRITABLE BOWEL SYNDROME
  2. MIRALAX [Suspect]
     Active Substance: POLYETHYLENE GLYCOL 3350
     Indication: GASTROINTESTINAL DISORDER
     Dosage: (1 CAPFUL DOSE)
     Route: 048

REACTIONS (3)
  - Product use in unapproved indication [Unknown]
  - Incorrect drug administration duration [Unknown]
  - Drug prescribing error [Unknown]
